FAERS Safety Report 5820211-8 (Version None)
Quarter: 2008Q3

REPORT INFORMATION
  Report Type: 
  Country: None (occurrence: None)
  Receive Date: 20080724
  Receipt Date: 20080723
  Transmission Date: 20090109
  Serious: Yes (Hospitalization)
  Sender: FDA-Public Use
  Company Number: PHEH1999US01635

PATIENT
  Sex: Male
  Weight: 75 kg

DRUGS (4)
  1. MYCOPHENOLATE MOFETIL [Suspect]
     Dosage: 1 G, BID
     Route: 048
     Dates: start: 19990225
  2. NEORAL [Suspect]
     Route: 048
     Dates: start: 19990401
  3. PREDNISONE TAB [Suspect]
     Route: 048
     Dates: start: 19990401
  4. INSULIN [Concomitant]

REACTIONS (2)
  - PNEUMONIA [None]
  - SLEEP APNOEA SYNDROME [None]
